FAERS Safety Report 18774568 (Version 1)
Quarter: 2021Q1

REPORT INFORMATION
  Report Type: Report from Study
  Country: US (occurrence: US)
  Receive Date: 20210122
  Receipt Date: 20210122
  Transmission Date: 20210419
  Serious: Yes (Death)
  Sender: FDA-Public Use
  Company Number: US-ASTRAZENECA-2021A010227

PATIENT
  Age: 22322 Day
  Sex: Male
  Weight: 63.5 kg

DRUGS (10)
  1. ADVIL [Concomitant]
     Active Substance: IBUPROFEN
  2. SPIRONOLACTONE. [Concomitant]
     Active Substance: SPIRONOLACTONE
  3. POLYETHYLENE GLYCOL [Concomitant]
     Active Substance: POLYETHYLENE GLYCOLS
  4. MORPHINE SULFATE. [Concomitant]
     Active Substance: MORPHINE SULFATE
  5. LYNPARZA [Suspect]
     Active Substance: OLAPARIB
     Indication: PANCREATIC CARCINOMA
     Route: 048
     Dates: start: 20200708
  6. PANTOPRAZOLE SODIUM. [Concomitant]
     Active Substance: PANTOPRAZOLE SODIUM
  7. OXYCODONE [Concomitant]
     Active Substance: OXYCODONE
  8. ESCITALOPRAM OXALATE. [Concomitant]
     Active Substance: ESCITALOPRAM OXALATE
  9. CELECOXIB. [Concomitant]
     Active Substance: CELECOXIB
  10. BUPRENORPHINE. [Concomitant]
     Active Substance: BUPRENORPHINE

REACTIONS (1)
  - Death [Fatal]

NARRATIVE: CASE EVENT DATE: 20201222
